FAERS Safety Report 7562352-3 (Version None)
Quarter: 2011Q2

REPORT INFORMATION
  Report Type: 
  Country: None (occurrence: None)
  Receive Date: 20110620
  Receipt Date: 20110620
  Transmission Date: 20111010
  Serious: Yes (Hospitalization)
  Sender: FDA-Public Use
  Company Number: None

PATIENT
  Age: 59 Year
  Sex: Male
  Weight: 74 kg

DRUGS (3)
  1. ENOXAPARIN [Suspect]
     Indication: HYPERTENSION
     Dosage: 120 MG EVERY DAY SQ
     Route: 058
     Dates: start: 20101001, end: 20110520
  2. ENOXAPARIN [Suspect]
     Indication: THROMBOSIS PROPHYLAXIS
     Dosage: 120 MG EVERY DAY SQ
     Route: 058
     Dates: start: 20101001, end: 20110520
  3. ENOXAPARIN [Suspect]
     Indication: COLON CANCER
     Dosage: 120 MG EVERY DAY SQ
     Route: 058
     Dates: start: 20101001, end: 20110520

REACTIONS (4)
  - URINARY RETENTION [None]
  - HAEMATOMA [None]
  - THROMBOSIS [None]
  - HAEMATURIA [None]
